FAERS Safety Report 6943668-8 (Version None)
Quarter: 2010Q3

REPORT INFORMATION
  Report Type: 
  Country: None (occurrence: None)
  Receive Date: 20100826
  Receipt Date: 20100728
  Transmission Date: 20110219
  Serious: Yes (Hospitalization, Other)
  Sender: FDA-Public Use
  Company Number: PHEH2007US14568

PATIENT
  Sex: Female
  Weight: 56.689 kg

DRUGS (92)
  1. ZOMETA [Suspect]
     Indication: MULTIPLE MYELOMA
     Dosage: UNK
     Dates: start: 20070501
  2. FOSAMAX [Suspect]
  3. WELLBUTRIN [Concomitant]
     Dosage: 200 MG, BID
  4. PAXIL [Concomitant]
     Dosage: 40 MG
     Dates: end: 20060926
  5. PAXIL [Concomitant]
     Dosage: 60 MG /  DAILY
     Dates: start: 20060927, end: 20061114
  6. PAXIL [Concomitant]
     Dosage: 30 MG
     Dates: start: 20061115, end: 20061121
  7. ZOCOR [Concomitant]
     Dosage: 80 MG, QD
     Dates: start: 20030101
  8. PROPULSID [Concomitant]
     Dosage: 40 MG, BID
  9. CELEXA [Concomitant]
  10. ESTRATEST [Concomitant]
     Dosage: 1.25/2.5 QAM
  11. COREG [Concomitant]
     Dosage: 6.25 MG, QAM
  12. COLACE [Concomitant]
     Dosage: UNK
  13. NEXIUM [Concomitant]
     Dosage: 40 MG, QAM
  14. MOBIC [Concomitant]
     Dosage: 15 MG, QD
  15. SKELAXIN [Concomitant]
     Dosage: 800 MG, QID
  16. PROMETRIUM [Concomitant]
     Dosage: 100 MG, UNK
  17. EFFEXOR [Concomitant]
     Dosage: 225 MG, QHS
  18. TRAMADOL HCL [Concomitant]
     Dosage: 100 MG, QAM+QPM
  19. LUNESTA [Concomitant]
     Dosage: 2 MG, BEDTIME
  20. ATIVAN [Concomitant]
     Dosage: 1 MG, PRN Q12H
  21. LAXATIVES [Concomitant]
     Dosage: UNK
  22. AMITIZA [Concomitant]
     Dosage: 24 UG, BID
  23. LIPITOR [Concomitant]
     Dosage: UNK
     Dates: start: 20030101
  24. HYTRIN [Concomitant]
     Dosage: 5 MG, UNK
  25. CHEMOTHERAPEUTICS NOS [Concomitant]
  26. HYDROCHLOROTHIAZIDE [Concomitant]
     Indication: HYPERTENSION
  27. PROVIGIL [Concomitant]
     Indication: FATIGUE
  28. TOPRAL [Concomitant]
     Indication: HYPERTENSION
     Dosage: UNK
  29. PREVACID [Concomitant]
     Indication: GASTROOESOPHAGEAL REFLUX DISEASE
  30. TERAZOSIN HCL [Concomitant]
  31. TRIAMCINOLONE [Concomitant]
  32. CYTOMEL [Concomitant]
  33. TOPROL-XL [Concomitant]
  34. METRONIDAZOLE [Concomitant]
  35. TRAZODONE HCL [Concomitant]
  36. WELLBUTRIN SR [Concomitant]
  37. ACTONEL [Concomitant]
  38. PAROXETINE HCL [Concomitant]
  39. FLONASE [Concomitant]
  40. ASTELIN [Concomitant]
  41. QVAR 40 [Concomitant]
     Dosage: 40 MCG, 2 INHALATIONS DAILY
  42. PERCOCET [Concomitant]
     Dosage: UNK
  43. OMEPRAZOLE [Concomitant]
     Dosage: 20 MG / DAILY
  44. ZANAFLEX [Concomitant]
     Dosage: 4 MG, 1/2 TABLET
  45. REVLIMID [Concomitant]
     Dosage: UNK
  46. LIPITOR [Concomitant]
     Dosage: UNK
  47. ULTRAM [Concomitant]
     Dosage: 300 MG / DAILY
     Route: 048
  48. BENICAR [Concomitant]
     Dosage: UNK
  49. CITALOPRAM HYDROBROMIDE [Concomitant]
     Dosage: 60 MG / DAILY
     Route: 048
     Dates: end: 20071204
  50. CITALOPRAM HYDROBROMIDE [Concomitant]
     Dosage: 20 MG / EVERY 3-4 NIGHTS
     Dates: start: 20071205
  51. ARANESP [Concomitant]
     Dosage: UNK
  52. DEXAMETHASONE [Concomitant]
     Dosage: UNK
     Dates: start: 20070416
  53. VELCADE [Concomitant]
     Dosage: UNK
  54. DOXILEK [Concomitant]
     Dosage: UNK
  55. NEUPOGEN [Concomitant]
     Dosage: 960 MCG / DAILY
     Dates: start: 20071201
  56. MELPHALAN [Concomitant]
  57. DIGITALIS TAB [Concomitant]
     Dosage: UNK
     Dates: start: 20080201
  58. MELOXICAM [Concomitant]
     Dosage: 15 MG
  59. BUPROPION HCL [Concomitant]
     Dosage: 200 MG
  60. TIZANIDINE HYDROCHLORIDE [Concomitant]
     Dosage: 4 MG
  61. BENICAR HCT [Concomitant]
     Dosage: 12.5 MG
  62. FLUCONAZOLE [Concomitant]
     Dosage: 200 MG
  63. DOXYCYCLINE HYCLATE [Concomitant]
     Dosage: 100 MG
  64. CHLORHEXIDINE GLUCONATE [Concomitant]
     Dosage: UNK
  65. LORAZEPAM [Concomitant]
     Dosage: 1 MG
  66. PENICILLIN V POTASSIUM [Concomitant]
     Dosage: 500 MG
  67. PERIOGARD [Concomitant]
     Dosage: UNK
  68. CELEBREX [Concomitant]
     Dosage: 200 MG
  69. IBUPROFEN [Concomitant]
     Dosage: 800 MG
  70. AMBIEN [Concomitant]
     Dosage: 6.25 MG
  71. ZELNORM                                 /USA/ [Concomitant]
     Dosage: 6.MG
  72. PROCHLORPERAZINE [Concomitant]
     Dosage: 10 MG
  73. GLYCOLAX [Concomitant]
     Dosage: UNK
  74. CYMBALTA [Concomitant]
     Dosage: 30 MG
     Dates: end: 20061122
  75. CYMBALTA [Concomitant]
     Dosage: 60 MG / DAILY
     Dates: start: 20061123, end: 20061213
  76. CYMBALTA [Concomitant]
     Dosage: 90 MG / DAILY
     Dates: start: 20061213
  77. PAROXETINE HYDROCHLORIDE [Concomitant]
     Dosage: 40 MG
  78. HYDROCODONE BITARTRATE [Concomitant]
     Dosage: 500 MG
  79. TERAZOSIN HYDROCHLORIDE [Concomitant]
     Dosage: 5 MG
  80. CEPHALEXIN [Concomitant]
     Dosage: 500 MG
  81. TRAMADOL HYDROCHLORIDE [Concomitant]
     Dosage: 50 MG
  82. TRIAMTERENE AND HYDROCHLOROTHIAZID ^HARRIS^ [Concomitant]
     Dosage: 25 MG
  83. PREDNISONE [Concomitant]
     Dosage: UNK
  84. LITHIUM [Concomitant]
     Dosage: UNK
  85. PROZAC [Concomitant]
     Dosage: UNK
  86. ZOLOFT [Concomitant]
     Dosage: UNK
  87. LEXAPRO [Concomitant]
     Dosage: UNK
  88. ELAVIL [Concomitant]
     Dosage: UNK
  89. ASPIRIN [Concomitant]
     Dosage: UNK
  90. ESTROGEN W/MEDROXYPROGESTERON [Concomitant]
  91. LANOXIN [Concomitant]
     Dosage: 0.125 MG/ DAILY
  92. ALDACTONE [Concomitant]

REACTIONS (99)
  - ABDOMINAL PAIN [None]
  - ABDOMINAL PAIN UPPER [None]
  - ACTINOMYCOSIS [None]
  - ANAEMIA [None]
  - ANGIOPATHY [None]
  - ANHEDONIA [None]
  - ANXIETY [None]
  - ARTHRITIS [None]
  - AZOTAEMIA [None]
  - BACTERAEMIA [None]
  - BONE DENSITY DECREASED [None]
  - BONE DISORDER [None]
  - BONE EROSION [None]
  - BONE FRAGMENTATION [None]
  - BONE LESION [None]
  - CARDIAC FAILURE CONGESTIVE [None]
  - CONGESTIVE CARDIOMYOPATHY [None]
  - CONSTIPATION [None]
  - COUGH [None]
  - DEFORMITY [None]
  - DENTAL FISTULA [None]
  - DERMATITIS [None]
  - DIARRHOEA [None]
  - DIURETIC THERAPY [None]
  - DIVERTICULUM [None]
  - ECZEMA [None]
  - ECZEMA ASTEATOTIC [None]
  - EJECTION FRACTION DECREASED [None]
  - EMOTIONAL DISTRESS [None]
  - ENDODONTIC PROCEDURE [None]
  - EXCESSIVE GRANULATION TISSUE [None]
  - EXOSTOSIS [None]
  - FALL [None]
  - FIBROUS HISTIOCYTOMA [None]
  - FLUID OVERLOAD [None]
  - GASTROOESOPHAGEAL REFLUX DISEASE [None]
  - GINGIVAL GRAFT [None]
  - GINGIVAL RECESSION [None]
  - HALLUCINATION, AUDITORY [None]
  - HYPERKERATOSIS [None]
  - HYPERTENSION [None]
  - HYPOPHAGIA [None]
  - HYPOVOLAEMIA [None]
  - ICHTHYOSIS [None]
  - IMPAIRED HEALING [None]
  - INFLAMMATION [None]
  - JAW FRACTURE [None]
  - JAW OPERATION [None]
  - JOINT EFFUSION [None]
  - LOOSE TOOTH [None]
  - LYMPHOCYTE COUNT DECREASED [None]
  - MALNUTRITION [None]
  - MITRAL VALVE PROLAPSE [None]
  - MUCOSAL INFLAMMATION [None]
  - MULTIPLE MYELOMA [None]
  - MUSCULAR WEAKNESS [None]
  - NAUSEA [None]
  - NECK INJURY [None]
  - NODULE ON EXTREMITY [None]
  - OEDEMA PERIPHERAL [None]
  - OESOPHAGEAL MUCOSAL HYPERPLASIA [None]
  - ORAL CAVITY FISTULA [None]
  - ORAL FIBROMA [None]
  - ORAL MUCOSA ATROPHY [None]
  - OROPHARYNGEAL PAIN [None]
  - ORTHODONTIC APPLIANCE USER [None]
  - OSTEONECROSIS OF JAW [None]
  - PAIN [None]
  - PAIN IN JAW [None]
  - PALMAR-PLANTAR ERYTHRODYSAESTHESIA SYNDROME [None]
  - PARAESTHESIA ORAL [None]
  - PERIODONTAL DISEASE [None]
  - PLASMACYTOSIS [None]
  - POLYURIA [None]
  - POSTMENOPAUSAL HAEMORRHAGE [None]
  - PRURITUS [None]
  - PURULENT DISCHARGE [None]
  - PYREXIA [None]
  - RASH [None]
  - RENAL FAILURE [None]
  - RETCHING [None]
  - SKIN DISORDER [None]
  - SKIN FIBROSIS [None]
  - SKIN NEOPLASM EXCISION [None]
  - SPINAL COLUMN STENOSIS [None]
  - SPINAL OSTEOARTHRITIS [None]
  - STEM CELL TRANSPLANT [None]
  - SWELLING [None]
  - TACHYCARDIA [None]
  - TONGUE COATED [None]
  - TOOTH DISORDER [None]
  - TOOTH EXTRACTION [None]
  - TOOTH FRACTURE [None]
  - TOOTH INFECTION [None]
  - TOOTH LOSS [None]
  - UTERINE LEIOMYOMA [None]
  - VIITH NERVE PARALYSIS [None]
  - WOUND DEHISCENCE [None]
  - WOUND DRAINAGE [None]
